FAERS Safety Report 4974514-X (Version None)
Quarter: 2006Q2

REPORT INFORMATION
  Report Type: 
  Country: None (occurrence: None)
  Receive Date: 20060410
  Receipt Date: 20060327
  Transmission Date: 20061013
  Serious: Yes (Other)
  Sender: FDA-Public Use
  Company Number: 2006016562

PATIENT
  Age: 80 Year
  Sex: Female
  Weight: 50 kg

DRUGS (4)
  1. XALATAN [Suspect]
     Indication: ANGLE CLOSURE GLAUCOMA
     Dates: start: 20020101
  2. XALACOM (LATANOPROST, TIMOLOL) [Suspect]
     Indication: ANGLE CLOSURE GLAUCOMA
     Dosage: OPHTHALMIC
     Route: 047
     Dates: end: 20051001
  3. PILOCARPINE HYDROCHLORIDE [Suspect]
     Indication: ANGLE CLOSURE GLAUCOMA
     Dates: start: 20020101
  4. PILOCARPINE [Concomitant]

REACTIONS (8)
  - ANGLE CLOSURE GLAUCOMA [None]
  - CATARACT [None]
  - CORNEAL OEDEMA [None]
  - DRUG INEFFECTIVE [None]
  - EYE INFLAMMATION [None]
  - HYPERTONIA [None]
  - IRIDOCYCLITIS [None]
  - UVEITIS [None]
